FAERS Safety Report 11651322 (Version 3)
Quarter: 2016Q1

REPORT INFORMATION
  Report Type: Report from Study
  Country: DE (occurrence: DE)
  Receive Date: 20151022
  Receipt Date: 20160302
  Transmission Date: 20160525
  Serious: Yes (Other)
  Sender: FDA-Public Use
  Company Number: DE-ROCHE-1648958

PATIENT
  Age: 47 Year
  Sex: Female

DRUGS (11)
  1. SIMVASTATIN. [Concomitant]
     Active Substance: SIMVASTATIN
  2. DICLOFENAC [Concomitant]
     Active Substance: DICLOFENAC
  3. PREGABALIN. [Concomitant]
     Active Substance: PREGABALIN
  4. METHYLPREDNISOLONE. [Concomitant]
     Active Substance: METHYLPREDNISOLONE
  5. TILIDIN [Concomitant]
     Active Substance: NALOXONE HYDROCHLORIDE\TILIDINE HYDROCHLORIDE
  6. METOPROLOL. [Concomitant]
     Active Substance: METOPROLOL
  7. LORZAAR [Concomitant]
     Active Substance: LOSARTAN
  8. RITUXIMAB [Suspect]
     Active Substance: RITUXIMAB
     Indication: RHEUMATOID ARTHRITIS
     Dosage: RECEIVED SUBSEQUENT DOSES IN MAR/2009, SEP/2009, JUN/2010,? ON 27/JAN/2015, MOST RECENT DOSE OF RITU
     Route: 065
     Dates: start: 200809
  9. METHOTREXATE (METHOTREXATE SODIUM) [Suspect]
     Active Substance: METHOTREXATE SODIUM
     Indication: RHEUMATOID ARTHRITIS
     Dosage: SUBSEQUENT DOSES OF METHOTREXATE ON MAR/2011, JAN/2012, JUL/2012, MAY/2013 AND JAN/2015.
     Route: 065
  10. MARCUMAR [Concomitant]
     Active Substance: PHENPROCOUMON
  11. PANTOPRAZOLE [Concomitant]
     Active Substance: PANTOPRAZOLE SODIUM

REACTIONS (2)
  - Sinusitis [Unknown]
  - Carcinoma in situ of skin [Recovered/Resolved]

NARRATIVE: CASE EVENT DATE: 20141024
